FAERS Safety Report 21383320 (Version 1)
Quarter: 2022Q3

REPORT INFORMATION
  Report Type: Report from Study
  Country: US (occurrence: US)
  Receive Date: 20220927
  Receipt Date: 20220927
  Transmission Date: 20221026
  Serious: Yes (Other)
  Sender: FDA-Public Use
  Company Number: US-ABBVIE-4131410

PATIENT
  Sex: Female

DRUGS (1)
  1. IMBRUVICA [Suspect]
     Active Substance: IBRUTINIB
     Indication: B-cell small lymphocytic lymphoma
     Route: 048

REACTIONS (6)
  - Basal cell carcinoma [Unknown]
  - Alopecia [Unknown]
  - Onychomadesis [Unknown]
  - Iron deficiency anaemia [Unknown]
  - Rash [Unknown]
  - Limb injury [Unknown]
